FAERS Safety Report 5092424-7 (Version None)
Quarter: 2006Q3

REPORT INFORMATION
  Report Type: 
  Country: None (occurrence: None)
  Receive Date: 20060825
  Receipt Date: 20060817
  Transmission Date: 20061208
  Serious: Yes (Hospitalization)
  Sender: FDA-Public Use
  Company Number: 163-20785-06080913

PATIENT
  Age: 41 Year
  Sex: Female

DRUGS (15)
  1. THALOMID [Suspect]
     Indication: MULTIPLE MYELOMA
     Dosage: 200 MG, 1 IN 1 D, ORAL; 1 IN 1 D, ORAL
     Route: 048
     Dates: start: 20060419, end: 20060717
  2. THALOMID [Suspect]
     Indication: MULTIPLE MYELOMA
     Dosage: 200 MG, 1 IN 1 D, ORAL; 1 IN 1 D, ORAL
     Route: 048
     Dates: start: 20060717
  3. DEXAMETHASONE TAB [Concomitant]
  4. LOVENOX [Concomitant]
  5. SENOKOT [Concomitant]
  6. OXYCODONE (OXYCODONE) [Concomitant]
  7. COMPAZINE [Concomitant]
  8. COLACE (DOCUSATE SODIUM) [Concomitant]
  9. ATIVAN [Concomitant]
  10. XANAX [Concomitant]
  11. VALTREX [Concomitant]
  12. PREVACID [Concomitant]
  13. PENCILLIN VEE POTASSIUM (PHENOXYMETHYLPENICILLIN) [Concomitant]
  14. BACTRIM [Concomitant]
  15. ALLEGRA D-24 (ALLEGRA-D - SLOW RELEASE) [Concomitant]

REACTIONS (4)
  - CONFUSIONAL STATE [None]
  - EYE DISORDER [None]
  - NAUSEA [None]
  - URINARY TRACT INFECTION [None]
